FAERS Safety Report 5707470-7 (Version None)
Quarter: 2008Q2

REPORT INFORMATION
  Report Type: 
  Country: None (occurrence: None)
  Receive Date: 20080416
  Receipt Date: 20080404
  Transmission Date: 20081010
  Serious: Yes (Other)
  Sender: FDA-Public Use
  Company Number: CA-ELI_LILLY_AND_COMPANY-CA200804002277

PATIENT
  Age: 7 Year
  Sex: Female

DRUGS (1)
  1. STRATTERA [Suspect]
     Dosage: 25 MG, UNK

REACTIONS (4)
  - DRUG ADMINISTRATION ERROR [None]
  - HAEMOPTYSIS [None]
  - NAUSEA [None]
  - STOMACH DISCOMFORT [None]
